FAERS Safety Report 6774451-4 (Version None)
Quarter: 2010Q2

REPORT INFORMATION
  Report Type: 
  Country: None (occurrence: None)
  Receive Date: 20100617
  Receipt Date: 20100604
  Transmission Date: 20101027
  Serious: Yes (Hospitalization)
  Sender: FDA-Public Use
  Company Number: PHHY2010FR36721

PATIENT
  Age: 79 Year
  Sex: Male

DRUGS (6)
  1. RASILEZ [Suspect]
     Dosage: 150 MG ONCE PER DAY
  2. PRAVASTATIN [Concomitant]
     Dosage: 40 MG
  3. NULYTELY [Concomitant]
  4. ZANIDIP [Concomitant]
     Dosage: 10 MG
  5. ZANIDIP [Concomitant]
     Dosage: 20MG
  6. COVERSYL [Concomitant]
     Dosage: 4 MG

REACTIONS (1)
  - THROMBOCYTOPENIA [None]
